FAERS Safety Report 5567079-5 (Version None)
Quarter: 2007Q4

REPORT INFORMATION
  Report Type: 
  Country: None (occurrence: None)
  Receive Date: 20071219
  Receipt Date: 20060706
  Transmission Date: 20080405
  Serious: Yes (Death, Hospitalization)
  Sender: FDA-Public Use
  Company Number: NI-ROCHE-454730

PATIENT
  Age: 50 Year
  Sex: Male

DRUGS (2)
  1. XELODA [Suspect]
     Indication: COLORECTAL CANCER
     Route: 048
     Dates: start: 20060411
  2. OXALIPLATINUM [Concomitant]
     Indication: COLORECTAL CANCER
     Route: 042

REACTIONS (3)
  - DEATH [None]
  - INTESTINAL OBSTRUCTION [None]
  - NAUSEA [None]
